FAERS Safety Report 7472975-8 (Version None)
Quarter: 2011Q2

REPORT INFORMATION
  Report Type: 
  Country: None (occurrence: None)
  Receive Date: 20110511
  Receipt Date: 20110509
  Transmission Date: 20111010
  Serious: Yes (Death)
  Sender: FDA-Public Use
  Company Number: PHHY2011AR38834

PATIENT
  Sex: Male

DRUGS (1)
  1. DIOVAN [Suspect]
     Dosage: 160 MG, UNK
     Dates: start: 20100801, end: 20101101

REACTIONS (2)
  - LUNG NEOPLASM MALIGNANT [None]
  - METASTASES TO BONE [None]
